FAERS Safety Report 9103680 (Version 1)
Quarter: 2013Q1

REPORT INFORMATION
  Report Type: Report from Study
  Country: CO (occurrence: CO)
  Receive Date: 20130219
  Receipt Date: 20130219
  Transmission Date: 20140127
  Serious: Yes (Death)
  Sender: FDA-Public Use
  Company Number: CO-SANOFI-AVENTIS-2013SA014578

PATIENT
  Age: 75 Year
  Sex: Female

DRUGS (2)
  1. LANTUS [Suspect]
     Indication: DIABETES MELLITUS
     Route: 058
     Dates: start: 2011, end: 2013
  2. APIDRA [Suspect]
     Indication: DIABETES MELLITUS
     Route: 058
     Dates: start: 2011, end: 2013

REACTIONS (1)
  - Lung neoplasm malignant [Fatal]
